FAERS Safety Report 14390416 (Version 3)
Quarter: 2018Q3

REPORT INFORMATION
  Report Type: Spontaneous
  Country: FR (occurrence: FR)
  Receive Date: 20180116
  Receipt Date: 20180724
  Transmission Date: 20181010
  Serious: Yes (Hospitalization, Other)
  Sender: FDA-Public Use
  Company Number: FR-009507513-1801FRA004356

PATIENT
  Age: 69 Year
  Sex: Male
  Weight: 88 kg

DRUGS (1)
  1. KEYTRUDA [Suspect]
     Active Substance: PEMBROLIZUMAB
     Indication: LUNG ADENOCARCINOMA STAGE IV
     Dosage: 1 INFUSION
     Route: 042
     Dates: start: 20171201

REACTIONS (6)
  - Neoplasm progression [Unknown]
  - Malignant neoplasm progression [Unknown]
  - Neck pain [Recovering/Resolving]
  - Quadriplegia [Recovering/Resolving]
  - Condition aggravated [Unknown]
  - Quadriparesis [Recovered/Resolved with Sequelae]

NARRATIVE: CASE EVENT DATE: 2017
